FAERS Safety Report 4452532-8 (Version None)
Quarter: 2004Q3

REPORT INFORMATION
  Report Type: 
  Country: None (occurrence: None)
  Receive Date: 20040813
  Receipt Date: 20040504
  Transmission Date: 20050211
  Serious: No
  Sender: FDA-Public Use
  Company Number: S04-USA-03412-01

PATIENT
  Sex: Female

DRUGS (6)
  1. NAMENDA [Suspect]
     Indication: PARKINSON'S DISEASE
     Dosage: 20 MG QD PO
     Route: 048
     Dates: start: 20040503, end: 20040503
  2. NAMENDA [Suspect]
     Indication: PARKINSON'S DISEASE
     Dosage: 10 MG QD PO
     Route: 048
     Dates: start: 20040504
  3. NAMENDA [Suspect]
     Indication: PARKINSON'S DISEASE
     Dosage: 5 MG QD PO
     Route: 048
     Dates: start: 20040412, end: 20040418
  4. NAMENDA [Suspect]
     Indication: PARKINSON'S DISEASE
     Dosage: 10 MG QD PO
     Route: 048
     Dates: start: 20040419, end: 20040425
  5. NAMENDA [Suspect]
     Indication: PARKINSON'S DISEASE
     Dosage: 15 MG QD PO
     Route: 048
     Dates: start: 20040426, end: 20040502
  6. CARBIDOPA [Concomitant]

REACTIONS (3)
  - DIZZINESS [None]
  - SOMNOLENCE [None]
  - SYNCOPE [None]
